FAERS Safety Report 8044016-5 (Version None)
Quarter: 2011Q4

REPORT INFORMATION
  Report Type: 
  Country: None (occurrence: None)
  Receive Date: 20111209
  Receipt Date: 20110930
  Transmission Date: 20120403
  Serious: No
  Sender: FDA-Public Use
  Company Number: 2011SP046421

PATIENT
  Age: 31 Year
  Sex: Male

DRUGS (3)
  1. RIBAVIRIN [Suspect]
     Indication: PRODUCT USED FOR UNKNOWN INDICATION
  2. PEGASYS [Suspect]
     Indication: PRODUCT USED FOR UNKNOWN INDICATION
  3. VICTRELIS [Suspect]
     Indication: HEPATITIS C
     Dosage: 800 MG, TID, PO
     Route: 048

REACTIONS (1)
  - VOMITING [None]
